FAERS Safety Report 9008381 (Version 5)
Quarter: 2013Q3

REPORT INFORMATION
  Report Type: Spontaneous
  Country: IT (occurrence: IT)
  Receive Date: 20130111
  Receipt Date: 20130708
  Transmission Date: 20140515
  Serious: Yes (Other)
  Sender: FDA-Public Use
  Company Number: PHHY2013IT002090

PATIENT
  Age: 72 Year
  Sex: Male

DRUGS (2)
  1. ZOMETA [Suspect]
     Indication: METASTATIC PAIN
     Dosage: 4 MG, MONTHLY
     Route: 042
     Dates: start: 20120808, end: 20120905
  2. SUTENT [Concomitant]
     Indication: RENAL CELL CARCINOMA
     Dosage: 25 MG, UNK
     Route: 048
     Dates: start: 20120808, end: 201211

REACTIONS (3)
  - Osteonecrosis of jaw [Unknown]
  - Purulent discharge [Unknown]
  - Pain in jaw [Unknown]
